FAERS Safety Report 6964114-4 (Version None)
Quarter: 2010Q3

REPORT INFORMATION
  Report Type: 
  Country: None (occurrence: None)
  Receive Date: 20100903
  Receipt Date: 20100826
  Transmission Date: 20110219
  Serious: Yes (Hospitalization)
  Sender: FDA-Public Use
  Company Number: US-ASTRAZENECA-2007UW25104

PATIENT
  Age: 19957 Day
  Sex: Female
  Weight: 89.8 kg

DRUGS (16)
  1. SEROQUEL [Suspect]
     Indication: DEPRESSION
     Dosage: 200MG/300MG
     Route: 048
     Dates: start: 20030101, end: 20061101
  2. SEROQUEL [Suspect]
     Dosage: 200MG-600MG
     Route: 048
     Dates: start: 20031201
  3. AMARYL [Concomitant]
     Route: 065
  4. DEPAKOTE [Concomitant]
     Route: 065
  5. METFORMIN [Concomitant]
     Route: 065
  6. LEVOTHYROXINE [Concomitant]
     Route: 065
  7. AMBIEN [Concomitant]
     Route: 065
  8. HUMULIN R [Concomitant]
     Route: 065
  9. PYRIDOXINE HCL [Concomitant]
     Route: 065
  10. LANTUS [Concomitant]
     Route: 065
  11. IBUPROFEN [Concomitant]
     Route: 065
  12. PENICILLIN VK [Concomitant]
     Route: 065
  13. LIPITOR [Concomitant]
     Route: 065
  14. TRAZODONE HCL [Concomitant]
     Route: 065
  15. COGENTIN [Concomitant]
     Route: 065
  16. RESPERIDAL [Concomitant]
     Dosage: 1 MG AM AND 2 MG HS
     Route: 065

REACTIONS (7)
  - CERUMEN IMPACTION [None]
  - DIABETES MELLITUS [None]
  - DIARRHOEA [None]
  - ECZEMA [None]
  - HEPATOMEGALY [None]
  - SCHIZOPHRENIA, PARANOID TYPE [None]
  - TREMOR [None]
